FAERS Safety Report 13700502 (Version 5)
Quarter: 2019Q1

REPORT INFORMATION
  Report Type: Spontaneous
  Country: DE (occurrence: DE)
  Receive Date: 20170629
  Receipt Date: 20190302
  Transmission Date: 20190417
  Serious: Yes (Life-Threatening, Hospitalization, Other)
  Sender: FDA-Public Use
  Company Number: DE-ACCORD-053091

PATIENT
  Age: 53 Year
  Sex: Female
  Weight: 76 kg

DRUGS (5)
  1. MABTHERA [Interacting]
     Active Substance: RITUXIMAB
     Indication: NON-HODGKIN^S LYMPHOMA
     Dosage: DAILY DOSE: 375 MG/M2 MILLIGRAM(S)/SQ. METER EVERY TOTAL
     Route: 042
  2. BENDAMUSTINE/BENDAMUSTINE HYDROCHLORIDE ? [Suspect]
     Active Substance: BENDAMUSTINE
     Indication: NON-HODGKIN^S LYMPHOMA
     Dosage: DAILY DOSE: 180 MG/M2 MILLIGRAM(S)/SQ. METER EVERY TOTAL
     Route: 042
  3. PANTOPRAZOLE [Concomitant]
     Active Substance: PANTOPRAZOLE
  4. ALLOPURINOL. [Concomitant]
     Active Substance: ALLOPURINOL
     Indication: HYPERURICAEMIA
     Dosage: DAILY DOSE: 300 MILLGRAMS EVERY DAY
     Route: 048
     Dates: end: 20170516
  5. COTRIM [Concomitant]
     Active Substance: SULFAMETHOXAZOLE\TRIMETHOPRIM
     Indication: B-CELL DEPLETION THERAPY
     Dosage: DAILY DOSE: 2 DF DOSAGE FORM EVERY 2 WEEKS
     Route: 048
     Dates: end: 20170516

REACTIONS (11)
  - Angioedema [Not Recovered/Not Resolved]
  - Capillary leak syndrome [Not Recovered/Not Resolved]
  - Herpes simplex [Not Recovered/Not Resolved]
  - Rash generalised [Not Recovered/Not Resolved]
  - Nausea [Unknown]
  - Pancytopenia [Not Recovered/Not Resolved]
  - Febrile neutropenia [Unknown]
  - Anaphylactic reaction [Not Recovered/Not Resolved]
  - Hypotension [Unknown]
  - Drug interaction [Unknown]
  - Vomiting [Unknown]

NARRATIVE: CASE EVENT DATE: 20170516
